FAERS Safety Report 25184211 (Version 2)
Quarter: 2025Q3

REPORT INFORMATION
  Report Type: Spontaneous
  Country: US (occurrence: US)
  Receive Date: 20250410
  Receipt Date: 20250801
  Transmission Date: 20251021
  Serious: No
  Sender: XERIS PHARMACEUTICALS
  Company Number: US-BRIAN CONNER SVP QUALITY AND CHIEF COMPLIANCE OFFICER-2025XER00216

PATIENT
  Sex: Male

DRUGS (1)
  1. GVOKE [Suspect]
     Active Substance: GLUCAGON

REACTIONS (5)
  - Device delivery system issue [Recovered/Resolved]
  - Injury associated with device [Recovered/Resolved]
  - Device physical property issue [Recovered/Resolved]
  - Needle issue [Recovered/Resolved]
  - Device use error [Recovered/Resolved]
